FAERS Safety Report 6490147-0 (Version None)
Quarter: 2009Q4

REPORT INFORMATION
  Report Type: 
  Country: None (occurrence: None)
  Receive Date: 20091211
  Receipt Date: 20090701
  Transmission Date: 20100525
  Serious: No
  Sender: FDA-Public Use
  Company Number: A0795012A

PATIENT
  Age: 50 Year
  Sex: Male

DRUGS (7)
  1. FLUTICASONE NASAL SPRAY [Suspect]
     Indication: WHEEZING
  2. ADVAIR DISKUS 100/50 [Concomitant]
     Indication: WHEEZING
     Dosage: 1PUFF TWICE PER DAY
     Route: 055
     Dates: start: 20010501
  3. Z-PAK [Concomitant]
  4. LIPITOR [Concomitant]
  5. ALBUTEROL [Concomitant]
  6. OMEPRAZOLE [Concomitant]
  7. ANDROGEL [Concomitant]

REACTIONS (3)
  - PRURITUS [None]
  - RASH [None]
  - URTICARIA [None]
